FAERS Safety Report 4505437-8 (Version None)
Quarter: 2004Q4

REPORT INFORMATION
  Report Type: 
  Country: None (occurrence: None)
  Receive Date: 20041018
  Receipt Date: 20040927
  Transmission Date: 20050328
  Serious: Yes (Other)
  Sender: FDA-Public Use
  Company Number: 208315

PATIENT
  Age: 72 Year
  Sex: Female
  Weight: 73.5 kg

DRUGS (15)
  1. XOLAIR [Suspect]
     Indication: ASTHMA
     Dosage: 150 MG Q4W SUBCUTANEOUS
     Route: 058
     Dates: start: 20040403, end: 20040503
  2. CELEBREX [Concomitant]
  3. SYNTHROID [Concomitant]
  4. COMBIVENT (ALBUTEROL, ALBUTEROL SULFATE, IPRATROPIUM BROMIDE) [Concomitant]
  5. NEXIUM [Concomitant]
  6. LORAZEPAM [Concomitant]
  7. ADVAIR (SALMETEROL XINAFOATE, FLUTICASONE PROPIONATE) [Concomitant]
  8. OXYCONTIN [Concomitant]
  9. COUMADIN [Concomitant]
  10. ARANESP [Concomitant]
  11. LEXAPRO [Concomitant]
  12. METOCLOPRAMIDE (METOCLOPRAMIDE HYDROCHLORIDE) [Concomitant]
  13. ATIVAN [Concomitant]
  14. ALBUTEROL (ALBUTEROL SULFATE, ALBUTEROL) [Concomitant]
  15. ATROVENT [Concomitant]

REACTIONS (1)
  - LUNG NEOPLASM MALIGNANT [None]
